FAERS Safety Report 4381937-9 (Version None)
Quarter: 2004Q2

REPORT INFORMATION
  Report Type: 
  Country: None (occurrence: None)
  Receive Date: 20040615
  Receipt Date: 20040602
  Transmission Date: 20050107
  Serious: Yes (Life-Threatening)
  Sender: FDA-Public Use
  Company Number: MK200406-0063-1

PATIENT
  Age: 2 Year
  Sex: Male

DRUGS (1)
  1. TOFRANIL TAB [Suspect]
     Indication: POISONING DELIBERATE
     Dosage: ONE TIME
     Dates: start: 20040527, end: 20040527

REACTIONS (2)
  - POISONING DELIBERATE [None]
  - VICTIM OF CHILD ABUSE [None]
